FAERS Safety Report 6051484-7 (Version None)
Quarter: 2009Q1

REPORT INFORMATION
  Report Type: 
  Country: None (occurrence: None)
  Receive Date: 20090126
  Receipt Date: 20090121
  Transmission Date: 20090719
  Serious: Yes (Other)
  Sender: FDA-Public Use
  Company Number: A0764333A

PATIENT
  Age: 43 Year
  Sex: Male

DRUGS (4)
  1. EPIVIR-HBV [Suspect]
     Indication: HEPATITIS C
     Route: 042
     Dates: start: 20030101, end: 20040101
  2. RETROVIR [Suspect]
     Indication: HEPATITIS C
     Route: 065
  3. INTERFERON [Suspect]
  4. NARCOTICS [Concomitant]

REACTIONS (16)
  - ANGER [None]
  - CHILLS [None]
  - DRUG INEFFECTIVE [None]
  - DYSKINESIA [None]
  - FEELING ABNORMAL [None]
  - FEELING COLD [None]
  - FRUSTRATION [None]
  - HOT FLUSH [None]
  - HYPERHIDROSIS [None]
  - HYPOKALAEMIA [None]
  - MUSCLE SPASMS [None]
  - OBSESSIVE THOUGHTS [None]
  - OSTEOPOROSIS [None]
  - PYREXIA [None]
  - THERAPEUTIC RESPONSE UNEXPECTED [None]
  - WITHDRAWAL SYNDROME [None]
